FAERS Safety Report 9105844 (Version 2)
Quarter: 2014Q2

REPORT INFORMATION
  Report Type: Report from Study
  Country: JP (occurrence: JP)
  Receive Date: 20130220
  Receipt Date: 20140403
  Transmission Date: 20141212
  Serious: Yes (Death, Hospitalization, Other)
  Sender: FDA-Public Use
  Company Number: JP-009507513-2009SP006842

PATIENT
  Age: 34 Year
  Sex: Female
  Weight: 60 kg

DRUGS (60)
  1. TEMOZOLOMIDE [Suspect]
     Indication: ANAPLASTIC ASTROCYTOMA
     Dosage: 75 MG/M2, QD
     Route: 048
     Dates: start: 20071101, end: 20071219
  2. TEMOZOLOMIDE [Suspect]
     Dosage: 150 MG/M2, QD
     Route: 048
     Dates: start: 20080116, end: 20080120
  3. TEMOZOLOMIDE [Suspect]
     Dosage: 150 MG/M2, QD
     Route: 048
     Dates: start: 20080310, end: 20080314
  4. TEMOZOLOMIDE [Suspect]
     Dosage: 150 MG/M2, QD
     Route: 048
     Dates: start: 20080504, end: 20080508
  5. TEMOZOLOMIDE [Suspect]
     Dosage: 150 MG/M2, QD
     Route: 048
     Dates: start: 20080618, end: 20080622
  6. TEMOZOLOMIDE [Suspect]
     Dosage: 150 MG/M2, QD
     Route: 048
     Dates: start: 20080730, end: 20080803
  7. TEMOZOLOMIDE [Suspect]
     Dosage: 150 MG/M2, QD
     Route: 048
     Dates: start: 20080914, end: 20080918
  8. TEMOZOLOMIDE [Suspect]
     Dosage: 150 MG/M2, QD
     Route: 048
     Dates: start: 20081022, end: 20081026
  9. TEMOZOLOMIDE [Suspect]
     Dosage: 150 MG/M2, QD
     Route: 048
     Dates: start: 20081119, end: 20081123
  10. TEMOZOLOMIDE [Suspect]
     Dosage: 160 MG/M2, QD
     Route: 048
     Dates: start: 20081217, end: 20081221
  11. TEMOZOLOMIDE [Suspect]
     Dosage: 160 MG/M2, QD
     Route: 048
     Dates: start: 20090121, end: 20090125
  12. TEMOZOLOMIDE [Suspect]
     Dosage: 160 MG/M2, QD
     Route: 048
     Dates: start: 20090218, end: 20090219
  13. TEMOZOLOMIDE [Suspect]
     Dosage: 160 MG/M2, QD
     Route: 048
     Dates: start: 20090303, end: 20090305
  14. TEMOZOLOMIDE [Suspect]
     Dosage: 160 MG/M2, QD
     Route: 048
     Dates: start: 20090401, end: 20090405
  15. TEMOZOLOMIDE [Suspect]
     Dosage: 160 MG/M2, QD
     Route: 048
     Dates: start: 20090429, end: 20090503
  16. TEMOZOLOMIDE [Suspect]
     Dosage: 160 MG/M2, QD
     Route: 048
     Dates: start: 20090527, end: 20090531
  17. TEMOZOLOMIDE [Suspect]
     Dosage: 160 MG/M2, QD
     Route: 048
     Dates: start: 20090624, end: 20090628
  18. TEMOZOLOMIDE [Suspect]
     Dosage: 160 MG/M2, QD
     Route: 048
     Dates: start: 20090722, end: 20090726
  19. TEMOZOLOMIDE [Suspect]
     Dosage: 160 MG/M2, QD
     Route: 048
     Dates: start: 20090819, end: 20090823
  20. TEMOZOLOMIDE [Suspect]
     Dosage: 160 MG/M2, QD
     Route: 048
     Dates: start: 20090916, end: 20090920
  21. TEMOZOLOMIDE [Suspect]
     Dosage: 160 MG/M2, QD
     Route: 048
     Dates: start: 20091021, end: 20091025
  22. TEMOZOLOMIDE [Suspect]
     Dosage: 200 MG/M2, QD
     Route: 048
     Dates: start: 20100830, end: 20100903
  23. TEMOZOLOMIDE [Suspect]
     Dosage: 200 MG/M2, QD
     Route: 048
     Dates: start: 20101025, end: 20101029
  24. TEMOZOLOMIDE [Suspect]
     Dosage: 150 MG/M2, QD
     Route: 048
     Dates: start: 20101220, end: 20101224
  25. TEMOZOLOMIDE [Suspect]
     Dosage: 150 MG/M2, QD
     Route: 048
     Dates: start: 20110220, end: 20110224
  26. TEMOZOLOMIDE [Suspect]
     Dosage: 150 MG/M2, QD
     Route: 048
     Dates: start: 20110320, end: 20110324
  27. TEMOZOLOMIDE [Suspect]
     Dosage: 150 MG/M2, QD
     Route: 048
     Dates: start: 20110515, end: 20110519
  28. PROCARBAZINE HYDROCHLORIDE [Suspect]
     Indication: ANAPLASTIC ASTROCYTOMA
     Dosage: UNK
     Route: 048
     Dates: start: 20080305, end: 20080508
  29. PROCARBAZINE HYDROCHLORIDE [Suspect]
     Dosage: UNK
     Route: 048
     Dates: start: 20100825, end: 20100903
  30. PROCARBAZINE HYDROCHLORIDE [Suspect]
     Dosage: UNK
     Route: 048
     Dates: end: 20110519
  31. DEPAKENE [Suspect]
     Indication: PROPHYLAXIS
     Dosage: UNK
     Route: 048
     Dates: end: 20110803
  32. RINDERON (BETAMETHASONE) [Suspect]
     Indication: PROPHYLAXIS
     Dosage: UNK
     Route: 048
     Dates: start: 20080201, end: 20080813
  33. RINDERON (BETAMETHASONE) [Suspect]
     Indication: RADIATION INJURY
     Dosage: UNK
     Route: 041
     Dates: start: 20080124, end: 20080201
  34. RINDERON (BETAMETHASONE) [Suspect]
     Dosage: UNK
     Route: 041
     Dates: start: 20080423, end: 20080426
  35. CARBOPLATIN [Suspect]
     Indication: ANAPLASTIC ASTROCYTOMA
     Dosage: UNK
     Route: 051
     Dates: start: 2011, end: 2011
  36. ETOPOSIDE [Suspect]
     Indication: ANAPLASTIC ASTROCYTOMA
     Dosage: UNK
     Route: 051
     Dates: start: 2011, end: 2011
  37. BAKTAR [Concomitant]
     Indication: ANTIFUNGAL PROPHYLAXIS
     Route: 048
     Dates: start: 20080201, end: 20080813
  38. NAVOBAN [Concomitant]
     Indication: PROPHYLAXIS
     Dosage: UNK
     Route: 048
     Dates: start: 20071101, end: 20091025
  39. NAVOBAN [Concomitant]
     Dosage: UNK
     Route: 048
     Dates: start: 20100830, end: 20100903
  40. PRIMPERAN [Concomitant]
     Indication: PROPHYLAXIS
     Dosage: UNK UNK, PRN
     Route: 048
     Dates: start: 20071101
  41. NAUZELIN [Concomitant]
     Indication: PROPHYLAXIS
     Dosage: UNK UNK, PRN
     Route: 048
     Dates: start: 20071101
  42. GASTER (FAMOTIDINE) [Concomitant]
     Indication: PROPHYLAXIS
     Dosage: UNK
     Route: 048
     Dates: start: 20080201, end: 20110803
  43. THYRADIN [Concomitant]
     Indication: HYPOTHYROIDISM
     Dosage: UNK
     Route: 048
     Dates: start: 20080420, end: 20110803
  44. CORTRIL [Concomitant]
     Indication: HYPOTHYROIDISM
     Dosage: UNK
     Route: 048
     Dates: start: 20080829, end: 20090803
  45. SEFMAZON [Concomitant]
     Indication: PROPHYLAXIS
     Route: 041
     Dates: start: 20071107, end: 20071112
  46. CEFAZOLIN SODIUM [Concomitant]
     Indication: URINARY TRACT INFECTION
     Dosage: UNK
     Route: 041
     Dates: start: 20080808, end: 20080813
  47. CEFAZOLIN SODIUM [Concomitant]
     Dosage: UNK
     Dates: start: 20080826, end: 20080901
  48. SOLDEM 3A [Concomitant]
     Indication: PROPHYLAXIS
     Route: 041
     Dates: start: 20071107, end: 20071112
  49. CRAVIT [Concomitant]
     Indication: URINARY TRACT INFECTION
     Route: 048
     Dates: start: 20080610, end: 20080616
  50. UNASYN (SULTAMICILLIN TOSYLATE) [Concomitant]
     Indication: URINARY TRACT INFECTION
     Route: 041
     Dates: start: 20080807, end: 20080808
  51. MAGMITT [Concomitant]
     Indication: PROPHYLAXIS
     Dosage: UNK
     Route: 048
     Dates: start: 20080424, end: 20110803
  52. MELBIN [Concomitant]
     Indication: DIABETES MELLITUS
     Dosage: UNK
     Route: 048
     Dates: start: 20100204, end: 20110803
  53. BASEN [Concomitant]
     Indication: DIABETES MELLITUS
     Dosage: UNK
     Route: 048
     Dates: start: 20100204, end: 20110803
  54. WARFARIN [Concomitant]
     Dosage: UNK
     Route: 048
     Dates: start: 20080826, end: 20110803
  55. GLYCEOL (FRUCTOSE (+) GLYCERIN (+) SODIUM CHLORIDE) [Concomitant]
     Dosage: UNK
     Route: 041
     Dates: start: 20080124, end: 20080201
  56. GLYCEOL (FRUCTOSE (+) GLYCERIN (+) SODIUM CHLORIDE) [Concomitant]
     Dosage: UNK
     Route: 041
     Dates: start: 20080423, end: 20080426
  57. CEFMETAZON [Concomitant]
     Dosage: UNK
     Route: 041
     Dates: start: 20080808, end: 20080813
  58. CEFMETAZON [Concomitant]
     Dosage: UNK
     Route: 041
     Dates: start: 20080826, end: 20080901
  59. SOLDEM 1 [Concomitant]
     Dosage: UNK
     Route: 041
     Dates: start: 20080826, end: 20080901
  60. UNASYN S [Concomitant]
     Dosage: UNK
     Route: 041
     Dates: start: 20090224, end: 20090226

REACTIONS (16)
  - Disease progression [Fatal]
  - Septic shock [Fatal]
  - Pyelonephritis [Fatal]
  - Hydrocephalus [Recovered/Resolved]
  - Osteomyelitis [Recovered/Resolved]
  - Radiation injury [Recovered/Resolved]
  - Venous thrombosis [Recovering/Resolving]
  - Weight increased [Not Recovered/Not Resolved]
  - Platelet count decreased [Not Recovered/Not Resolved]
  - White blood cell count decreased [Recovered/Resolved]
  - Neutrophil count decreased [Recovered/Resolved]
  - Platelet count decreased [Recovered/Resolved]
  - Urinary tract infection [Recovering/Resolving]
  - Inflammation [Recovering/Resolving]
  - Hypothyroidism [Recovering/Resolving]
  - Type 2 diabetes mellitus [Not Recovered/Not Resolved]
